FAERS Safety Report 4285577-1 (Version None)
Quarter: 2004Q1

REPORT INFORMATION
  Report Type: 
  Country: None (occurrence: None)
  Receive Date: 20040202
  Receipt Date: 20040128
  Transmission Date: 20041129
  Serious: Yes (Death)
  Sender: FDA-Public Use
  Company Number: US-JNJFOC-20040100268

PATIENT
  Age: 47 Year
  Sex: Female

DRUGS (7)
  1. RISPERDAL [Suspect]
     Indication: SCHIZOPHRENIA
     Dosage: 3 MG, 1 IN 1 DAY, ORAL
     Route: 048
     Dates: start: 20020117, end: 20031223
  2. GLUCOTROL [Concomitant]
  3. GLUCOPHAGE [Concomitant]
  4. ZESTRIL [Concomitant]
  5. SYNTHROID [Concomitant]
  6. CELEXA [Concomitant]
  7. TRICOR [Concomitant]

REACTIONS (1)
  - PULMONARY EMBOLISM [None]
